FAERS Safety Report 6326129-9 (Version None)
Quarter: 2009Q3

REPORT INFORMATION
  Report Type: 
  Country: None (occurrence: None)
  Receive Date: 20090824
  Receipt Date: 20090819
  Transmission Date: 20100115
  Serious: Yes (Hospitalization)
  Sender: FDA-Public Use
  Company Number: PHHY2009JP35162

PATIENT
  Age: 71 Year
  Sex: Male

DRUGS (8)
  1. NEORAL [Suspect]
     Indication: PUSTULAR PSORIASIS
     Dosage: 300 MG DAILY
     Route: 048
  2. NEORAL [Suspect]
     Dosage: 200 MG DAILY
     Route: 048
  3. NEORAL [Suspect]
     Dosage: 125 MG DAILY
     Route: 048
  4. NEORAL [Suspect]
     Dosage: 125 MG DAILY
     Route: 048
  5. NEORAL [Suspect]
     Dosage: 100 MG DAILY
     Route: 048
  6. NEORAL [Suspect]
     Dosage: 75 MG DAILY
     Route: 048
  7. NEORAL [Suspect]
     Dosage: 50 MG DAILY
     Route: 048
  8. TIGASON [Concomitant]
     Indication: PUSTULAR PSORIASIS
     Dosage: 40 MG
     Route: 048

REACTIONS (2)
  - GINGIVAL HYPERTROPHY [None]
  - RENAL DISORDER [None]
